FAERS Safety Report 4583766-X (Version None)
Quarter: 2005Q1

REPORT INFORMATION
  Report Type: 
  Country: None (occurrence: None)
  Receive Date: 20050211
  Receipt Date: 20050118
  Transmission Date: 20050727
  Serious: Yes (Hospitalization, Other)
  Sender: FDA-Public Use
  Company Number: 16227

PATIENT
  Age: 27 Year
  Sex: Male
  Weight: 60.782 kg

DRUGS (1)
  1. METHOTREXATE INJ. USP 50MG/ 2ML-BEN VENUE LABS, INC. [Suspect]
     Indication: ACUTE LYMPHOCYTIC LEUKAEMIA

REACTIONS (1)
  - SQUAMOUS CELL CARCINOMA [None]
